FAERS Safety Report 12221790 (Version 1)
Quarter: 2016Q1

REPORT INFORMATION
  Report Type: Spontaneous
  Country: US (occurrence: US)
  Receive Date: 20160330
  Receipt Date: 20160330
  Transmission Date: 20160526
  Serious: No
  Sender: FDA-Public Use
  Company Number: US-MYLANLABS-2015M1005610

PATIENT
  Age: 52 Year
  Sex: Male

DRUGS (1)
  1. FENTANYL TRANSDERMAL SYSTEM [Suspect]
     Active Substance: FENTANYL
     Dosage: 100 ?G/QH; CHANGES Q 72HRS
     Route: 062
     Dates: start: 201501

REACTIONS (5)
  - Application site pain [Not Recovered/Not Resolved]
  - Drug effect decreased [Not Recovered/Not Resolved]
  - Application site erythema [Not Recovered/Not Resolved]
  - Pain [Not Recovered/Not Resolved]
  - Panic attack [Not Recovered/Not Resolved]

NARRATIVE: CASE EVENT DATE: 201501
